FAERS Safety Report 11331982 (Version 1)
Quarter: 2015Q3

REPORT INFORMATION
  Report Type: Spontaneous
  Country: US (occurrence: US)
  Receive Date: 20150803
  Receipt Date: 20150803
  Transmission Date: 20151125
  Serious: No
  Sender: FDA-Public Use
  Company Number: US-ELI_LILLY_AND_COMPANY-US200807005393

PATIENT
  Age: 94 Year
  Sex: Female

DRUGS (1)
  1. ZYPREXA [Suspect]
     Active Substance: OLANZAPINE
     Dosage: 5 MG, 2/D

REACTIONS (6)
  - Urinary tract infection [Recovered/Resolved]
  - Fall [Recovered/Resolved]
  - Agitation [Recovered/Resolved]
  - Fear [Recovered/Resolved]
  - Paranoia [Recovered/Resolved]
  - Feeling abnormal [Recovered/Resolved]

NARRATIVE: CASE EVENT DATE: 200807
